FAERS Safety Report 23069132 (Version 2)
Quarter: 2023Q4

REPORT INFORMATION
  Report Type: Spontaneous
  Country: MX (occurrence: MX)
  Receive Date: 20231016
  Receipt Date: 20231229
  Transmission Date: 20240109
  Serious: Yes (Life-Threatening)
  Sender: FDA-Public Use
  Company Number: MX-PFIZER INC-PV202300166233

PATIENT
  Age: 53 Year
  Sex: Female

DRUGS (6)
  1. FLUCONAZOLE [Suspect]
     Active Substance: FLUCONAZOLE
     Indication: Antifungal treatment
     Dosage: 100 MG, 1X/DAY, FOR 12 MONTHS
  2. FLUCONAZOLE [Suspect]
     Active Substance: FLUCONAZOLE
     Indication: Prophylaxis
  3. ENOXAPARIN SODIUM [Concomitant]
     Active Substance: ENOXAPARIN SODIUM
     Dosage: UNK
  4. DIGOXIN [Concomitant]
     Active Substance: DIGOXIN
     Dosage: UNK
  5. OMEPRAZOLE [Concomitant]
     Active Substance: OMEPRAZOLE
     Dosage: UNK
  6. CELECOXIB [Concomitant]
     Active Substance: CELECOXIB
     Dosage: UNK

REACTIONS (2)
  - Treatment failure [Unknown]
  - Incorrect product administration duration [Unknown]
